FAERS Safety Report 5985304-3 (Version None)
Quarter: 2008Q4

REPORT INFORMATION
  Report Type: 
  Country: None (occurrence: None)
  Receive Date: 20081203
  Receipt Date: 20081120
  Transmission Date: 20090506
  Serious: Yes (Death)
  Sender: FDA-Public Use
  Company Number: FABR-1000531

PATIENT
  Age: 47 Year
  Sex: Male

DRUGS (6)
  1. FABRAZYME [Suspect]
     Indication: FABRY'S DISEASE
     Dosage: 1 MG/KG, Q2W, INTRAVENOUS
     Route: 042
  2. MYOREL [Concomitant]
  3. EPREX [Concomitant]
  4. TEFRETOL (CARBAMAZEPINE) [Concomitant]
  5. BEROVENT (IPRATROPIUM BROMIDE, SALBUTAMOL) [Concomitant]
  6. PULMICORT [Concomitant]

REACTIONS (4)
  - CYANOSIS [None]
  - DYSPNOEA [None]
  - PNEUMONIA ASPIRATION [None]
  - PYREXIA [None]
